FAERS Safety Report 5853210-0 (Version None)
Quarter: 2008Q3

REPORT INFORMATION
  Report Type: 
  Country: None (occurrence: None)
  Receive Date: 20080821
  Receipt Date: 20080723
  Transmission Date: 20090109
  Serious: No
  Sender: FDA-Public Use
  Company Number: JP-EISAI MEDICAL RESEARCH-E2090-00529-SPO-JP

PATIENT
  Age: 90 Year
  Sex: Female

DRUGS (10)
  1. EXCEGRAN [Suspect]
     Indication: DRUG USE FOR UNKNOWN INDICATION
     Dosage: UNKNOWN
     Route: 048
     Dates: start: 20080704, end: 20080724
  2. ACINON [Concomitant]
     Route: 048
  3. GASMOTIN [Concomitant]
     Route: 048
  4. TOLEDOMIN [Concomitant]
     Route: 048
  5. BIOFERMIN [Concomitant]
     Route: 048
  6. FAMOTIDINE [Concomitant]
  7. TOPINA [Concomitant]
     Route: 048
  8. SOLU-MEDROL [Concomitant]
     Route: 042
  9. DECADRON SRC [Concomitant]
  10. ADRENAL HORMONE PREPARATIONS [Concomitant]

REACTIONS (1)
  - INTERSTITIAL LUNG DISEASE [None]
